FAERS Safety Report 18180088 (Version 1)
Quarter: 2020Q3

REPORT INFORMATION
  Report Type: Spontaneous
  Country: CA (occurrence: CA)
  Receive Date: 20200821
  Receipt Date: 20200821
  Transmission Date: 20201103
  Serious: Yes (Life-Threatening)
  Sender: FDA-Public Use
  Company Number: CA-PFIZER INC-2020322640

PATIENT
  Age: 16 Year
  Sex: Male
  Weight: 54 kg

DRUGS (53)
  1. CYCLOPHOSPHAMIDE. [Suspect]
     Active Substance: CYCLOPHOSPHAMIDE
     Dosage: 420 MG, 2X/DAY
     Route: 042
  2. AMOXICILLIN/CLAVULANIC ACID [Concomitant]
     Active Substance: AMOXICILLIN\CLAVULANIC ACID
     Route: 065
  3. CALCIUM CARBONATE. [Concomitant]
     Active Substance: CALCIUM CARBONATE
     Route: 065
  4. CLINDAMYCIN. [Concomitant]
     Active Substance: CLINDAMYCIN
     Route: 065
  5. EPINEPHRINE. [Concomitant]
     Active Substance: EPINEPHRINE
  6. FLUCONAZOLE. [Concomitant]
     Active Substance: FLUCONAZOLE
  7. HEPARIN CALCIUM [Concomitant]
     Active Substance: HEPARIN CALCIUM
  8. MELATONIN [Concomitant]
     Active Substance: MELATONIN
  9. NALOXONE [Concomitant]
     Active Substance: NALOXONE
  10. PIPERACILLIN AND TAZOBACTAM [Concomitant]
     Active Substance: PIPERACILLIN SODIUM\TAZOBACTAM SODIUM
  11. CLONIDINE. [Concomitant]
     Active Substance: CLONIDINE
     Route: 065
  12. CYTARABINE. [Concomitant]
     Active Substance: CYTARABINE
     Route: 065
  13. METOCLOPRAMIDE. [Concomitant]
     Active Substance: METOCLOPRAMIDE
  14. METRONIDAZOLE. [Concomitant]
     Active Substance: METRONIDAZOLE
  15. PENTAMIDINE ISETHIONATE. [Concomitant]
     Active Substance: PENTAMIDINE ISETHIONATE
  16. CLOTRIMAZOLE. [Concomitant]
     Active Substance: CLOTRIMAZOLE
     Route: 065
  17. FAMOTIDINE. [Concomitant]
     Active Substance: FAMOTIDINE
  18. FUROSEMIDE. [Concomitant]
     Active Substance: FUROSEMIDE
  19. LANSOPRAZOLE. [Concomitant]
     Active Substance: LANSOPRAZOLE
  20. LIDOCAINE. [Concomitant]
     Active Substance: LIDOCAINE
  21. MORPHINE [Concomitant]
     Active Substance: MORPHINE
  22. RITUXAN [Concomitant]
     Active Substance: RITUXIMAB
  23. DOXORUBICIN HCL [Suspect]
     Active Substance: DOXORUBICIN HYDROCHLORIDE
     Indication: BURKITT^S LYMPHOMA
     Dosage: 100 MG
     Route: 042
  24. BICARBONATE SODIUM [Concomitant]
     Active Substance: SODIUM BICARBONATE
     Route: 065
  25. FOLIC ACID. [Concomitant]
     Active Substance: FOLIC ACID
  26. CYCLOPHOSPHAMIDE. [Suspect]
     Active Substance: CYCLOPHOSPHAMIDE
     Indication: BURKITT^S LYMPHOMA
     Dosage: 500 MG
     Route: 042
  27. GABAPENTIN. [Concomitant]
     Active Substance: GABAPENTIN
  28. NAPROXEN. [Concomitant]
     Active Substance: NAPROXEN
  29. ONDANSETRON [Concomitant]
     Active Substance: ONDANSETRON
  30. ALLOPURINOL. [Concomitant]
     Active Substance: ALLOPURINOL
     Route: 065
  31. DIPHENHYDRAMINE. [Concomitant]
     Active Substance: DIPHENHYDRAMINE
     Route: 065
  32. HYDROMORPHONE [Concomitant]
     Active Substance: HYDROMORPHONE
  33. KETAMINE [Concomitant]
     Active Substance: KETAMINE
  34. MAGNESIUM [Concomitant]
     Active Substance: MAGNESIUM
  35. NYSTATIN. [Concomitant]
     Active Substance: NYSTATIN
  36. PREDNISONE. [Concomitant]
     Active Substance: PREDNISONE
  37. RANITIDINE. [Concomitant]
     Active Substance: RANITIDINE
  38. VINCRISTINE SULFATE. [Suspect]
     Active Substance: VINCRISTINE SULFATE
     Indication: BURKITT^S LYMPHOMA
     Dosage: 2 MG
     Route: 042
  39. ACETAMINOPHEN. [Concomitant]
     Active Substance: ACETAMINOPHEN
     Route: 065
  40. CIPROFLOXACIN. [Concomitant]
     Active Substance: CIPROFLOXACIN
     Route: 065
  41. DIMENHYDRINATE. [Concomitant]
     Active Substance: DIMENHYDRINATE
     Route: 065
  42. FASTURTEC [Concomitant]
     Active Substance: RASBURICASE
  43. LEUCOVORINE [Concomitant]
     Active Substance: LEUCOVORIN
  44. MYCAMINE [Concomitant]
     Active Substance: MICAFUNGIN SODIUM
  45. TERBINAFINE. [Concomitant]
     Active Substance: TERBINAFINE
  46. METHOTREXATE SODIUM. [Suspect]
     Active Substance: METHOTREXATE SODIUM
     Indication: BURKITT^S LYMPHOMA
     Dosage: 15 MG
     Route: 037
  47. METHOTREXATE SODIUM. [Suspect]
     Active Substance: METHOTREXATE SODIUM
     Dosage: 5000 MG
     Route: 042
  48. CEFTAZIDIME. [Concomitant]
     Active Substance: CEFTAZIDIME
     Route: 065
  49. HYDROCORTISONE. [Concomitant]
     Active Substance: HYDROCORTISONE
  50. METHYLPREDNISOLONE. [Concomitant]
     Active Substance: METHYLPREDNISOLONE
  51. PANTOPRAZOLE [Concomitant]
     Active Substance: PANTOPRAZOLE
  52. POTASSIUM [Concomitant]
     Active Substance: POTASSIUM
  53. VANCOMYCIN [Concomitant]
     Active Substance: VANCOMYCIN

REACTIONS (1)
  - Aplastic anaemia [Recovered/Resolved]
